FAERS Safety Report 7389143-0 (Version None)
Quarter: 2011Q2

REPORT INFORMATION
  Report Type: 
  Country: None (occurrence: None)
  Receive Date: 20110401
  Receipt Date: 20110325
  Transmission Date: 20111010
  Serious: Yes (Death, Hospitalization)
  Sender: FDA-Public Use
  Company Number: TW-ROCHE-767798

PATIENT
  Age: 55 Year
  Sex: Female

DRUGS (5)
  1. PEGASYS [Suspect]
     Dosage: STOP DATE: UNSPECIFIED DATE IN 2011
     Route: 058
  2. ROBATROL [Suspect]
     Dosage: STOP DATE: UNSPECIFIED DATE IN 2011 DOSE ADJUSTED
     Route: 048
  3. PEGASYS [Suspect]
     Indication: HEPATITIS C
     Route: 058
     Dates: start: 20100101
  4. PEGASYS [Suspect]
     Route: 058
  5. ROBATROL [Suspect]
     Indication: HEPATITIS C
     Route: 048
     Dates: start: 20100101

REACTIONS (4)
  - THROMBOTIC THROMBOCYTOPENIC PURPURA [None]
  - ANAEMIA [None]
  - THROMBOCYTOPENIA [None]
  - CEREBRAL HAEMORRHAGE [None]
